FAERS Safety Report 7135125-3 (Version None)
Quarter: 2010Q4

REPORT INFORMATION
  Report Type: 
  Country: None (occurrence: None)
  Receive Date: 20101203
  Receipt Date: 20041109
  Transmission Date: 20110411
  Serious: No
  Sender: FDA-Public Use
  Company Number: AU-GENENTECH-210499

PATIENT
  Age: 84 Year
  Sex: Female

DRUGS (1)
  1. MABTHERA [Suspect]
     Indication: NON-HODGKIN'S LYMPHOMA
     Route: 065

REACTIONS (1)
  - NEUTROPENIA [None]
